FAERS Safety Report 23339500 (Version 1)
Quarter: 2023Q4

REPORT INFORMATION
  Report Type: Spontaneous
  Country: GB (occurrence: GB)
  Receive Date: 20231226
  Receipt Date: 20231226
  Transmission Date: 20240109
  Serious: Yes (Life-Threatening)
  Sender: FDA-Public Use
  Company Number: None

PATIENT
  Age: 60 Year
  Sex: Male
  Weight: 114 kg

DRUGS (4)
  1. OXYCODONE HYDROCHLORIDE [Suspect]
     Active Substance: OXYCODONE HYDROCHLORIDE
     Indication: Pain
     Dosage: 120 MILLIGRAM, DAILY (40MG BD SR AND 10MG QDS IMMEDIATE RELEASE)
     Route: 065
     Dates: start: 20160803
  2. PROMETHAZINE [Suspect]
     Active Substance: PROMETHAZINE HYDROCHLORIDE
     Indication: Adverse drug reaction
     Dosage: 25-50MG AT NIGHT;
     Route: 065
     Dates: start: 20210202
  3. PROMETHAZINE [Suspect]
     Active Substance: PROMETHAZINE HYDROCHLORIDE
     Indication: Insomnia
  4. GABAPENTIN [Suspect]
     Active Substance: GABAPENTIN
     Indication: Neuralgia
     Dosage: 600 MG BD
     Route: 065
     Dates: start: 20220211

REACTIONS (4)
  - Respiratory depression [Recovering/Resolving]
  - Dyspnoea [Unknown]
  - Hypopnoea [Unknown]
  - Breath holding [Unknown]
